FAERS Safety Report 10180017 (Version 2)
Quarter: 2014Q2

REPORT INFORMATION
  Report Type: Spontaneous
  Country: US (occurrence: US)
  Receive Date: 20140519
  Receipt Date: 20140519
  Transmission Date: 20141212
  Serious: No
  Sender: FDA-Public Use
  Company Number: US-BRISTOL-MYERS SQUIBB COMPANY-20404588

PATIENT
  Age: 57 Year
  Sex: Male
  Weight: 71.88 kg

DRUGS (1)
  1. BARACLUDE [Suspect]
     Indication: HEPATITIS B
     Dosage: 1 HOUR BEFORE OR AFTER MEAL.
     Route: 048
     Dates: start: 20130404

REACTIONS (4)
  - Fatigue [Unknown]
  - Depression [Unknown]
  - Weight increased [Unknown]
  - Flatulence [Unknown]
